FAERS Safety Report 4900423-8 (Version None)
Quarter: 2006Q1

REPORT INFORMATION
  Report Type: 
  Country: None (occurrence: None)
  Receive Date: 20060201
  Receipt Date: 20060123
  Transmission Date: 20060701
  Serious: Yes (Death, Hospitalization, Other)
  Sender: FDA-Public Use
  Company Number: 2006-01-1269

PATIENT
  Age: 71 Year
  Sex: Female

DRUGS (14)
  1. TEMODAR [Suspect]
     Indication: METASTASES TO CENTRAL NERVOUS SYSTEM
     Dosage: 250 MG QD ORAL
     Route: 048
     Dates: end: 20051128
  2. TEMODAR [Suspect]
     Indication: METASTATIC MALIGNANT MELANOMA
     Dosage: 250 MG QD ORAL
     Route: 048
     Dates: end: 20051128
  3. THALOMID [Suspect]
     Indication: METASTASES TO CENTRAL NERVOUS SYSTEM
     Dosage: 50 MG QD ORAL
     Route: 048
     Dates: start: 20051012, end: 20051128
  4. THALOMID [Suspect]
     Indication: METASTATIC MALIGNANT MELANOMA
     Dosage: 50 MG QD ORAL
     Route: 048
     Dates: start: 20051012, end: 20051128
  5. LOVENOX [Suspect]
     Indication: DEEP VEIN THROMBOSIS
     Dates: start: 20051101, end: 20051201
  6. COUMADIN [Suspect]
     Indication: DEEP VEIN THROMBOSIS
     Dates: start: 20051129, end: 20051201
  7. SYNTHROID [Concomitant]
  8. POTASSIUM SUPPLEMENT (NOS) [Concomitant]
  9. AVANDIA [Concomitant]
  10. DIOVAN [Concomitant]
  11. PREVACID [Concomitant]
  12. PHENERGAN [Concomitant]
  13. NALFON [Concomitant]
  14. ATENOLOL [Concomitant]

REACTIONS (13)
  - ANAEMIA [None]
  - ASTHENIA [None]
  - BEDRIDDEN [None]
  - CONFUSIONAL STATE [None]
  - DEEP VEIN THROMBOSIS [None]
  - DEHYDRATION [None]
  - DYSARTHRIA [None]
  - DYSPHAGIA [None]
  - MALIGNANT NEOPLASM PROGRESSION [None]
  - METASTATIC MALIGNANT MELANOMA [None]
  - PROTHROMBIN TIME PROLONGED [None]
  - RECTAL HAEMORRHAGE [None]
  - VOMITING [None]
